FAERS Safety Report 7433572-3 (Version None)
Quarter: 2011Q2

REPORT INFORMATION
  Report Type: 
  Country: None (occurrence: None)
  Receive Date: 20110422
  Receipt Date: 20110413
  Transmission Date: 20111010
  Serious: Yes (Hospitalization)
  Sender: FDA-Public Use
  Company Number: US-ABBOTT-11P-163-0718798-00

PATIENT
  Sex: Male
  Weight: 93.978 kg

DRUGS (17)
  1. VITAMIN B-12 [Concomitant]
     Indication: CROHN'S DISEASE
     Dates: start: 20021101
  2. AUGMENTIN [Concomitant]
     Indication: PRODUCT USED FOR UNKNOWN INDICATION
     Dosage: 875 - 125 MG
     Dates: start: 20020801
  3. FERROUS SULFATE TAB [Concomitant]
     Indication: CROHN'S DISEASE
     Dates: start: 20080501
  4. PREDNISONE [Concomitant]
     Indication: PRODUCT USED FOR UNKNOWN INDICATION
     Dates: start: 20090729
  5. AZATHIOPRINE [Concomitant]
     Dates: start: 20090729
  6. HUMIRA [Suspect]
     Indication: CROHN'S DISEASE
     Route: 058
     Dates: start: 20090312
  7. MULTI-VITAMIN [Concomitant]
     Indication: ROUTINE HEALTH MAINTENANCE
     Dates: start: 20030101
  8. CYANOCOBALAMIN [Concomitant]
     Indication: CROHN'S DISEASE
     Dates: start: 20021101
  9. OMEGA-3 MARINE TRIGLYCERIDES [Concomitant]
     Indication: HYPERLIPIDAEMIA
     Dates: start: 20081201, end: 20100201
  10. DIPHENHYDRAMINE [Concomitant]
     Indication: INSOMNIA
     Dates: start: 20020101
  11. AZATHIOPRINE [Concomitant]
     Indication: CROHN'S DISEASE
     Dates: start: 20030401, end: 20090729
  12. BUDESONIDE [Concomitant]
     Indication: CROHN'S DISEASE
     Dates: start: 20070301
  13. ESOMEPRAZOLE MAGNESIUM [Concomitant]
     Indication: CROHN'S DISEASE
     Dates: start: 20021101
  14. HUMIRA [Suspect]
     Dates: start: 20090312
  15. MESALAZINE [Concomitant]
     Indication: CROHN'S DISEASE
     Dates: start: 20021101
  16. ADVAIR HFA [Concomitant]
     Indication: ASTHMA
     Dosage: 100/50 MG
     Dates: start: 19990801
  17. ERGOCALCIFEROL [Concomitant]
     Indication: PRODUCT USED FOR UNKNOWN INDICATION
     Dates: start: 20091217

REACTIONS (1)
  - AORTIC DISSECTION [None]
